FAERS Safety Report 13184389 (Version 2)
Quarter: 2017Q1

REPORT INFORMATION
  Report Type: Spontaneous
  Country: NO (occurrence: NO)
  Receive Date: 20170203
  Receipt Date: 20170209
  Transmission Date: 20170428
  Serious: Yes (Life-Threatening)
  Sender: FDA-Public Use
  Company Number: NO-009507513-1701NOR014355

PATIENT
  Age: 51 Year
  Sex: Female

DRUGS (3)
  1. RIBAVIRIN. [Suspect]
     Active Substance: RIBAVIRIN
     Indication: HEPATITIS C
     Dosage: UNK
     Route: 048
  2. EXVIERA [Suspect]
     Active Substance: DASABUVIR
     Indication: HEPATITIS C
     Dosage: STANDARD DOSE
     Route: 048
     Dates: start: 201603, end: 201606
  3. VIEKIRAX [Suspect]
     Active Substance: OMBITASVIR\PARITAPREVIR\RITONAVIR
     Indication: HEPATITIS C
     Dosage: STANDARD DOSE
     Route: 048
     Dates: start: 201603, end: 201606

REACTIONS (7)
  - Dry eye [Recovered/Resolved]
  - Dry skin [Recovered/Resolved]
  - Vision blurred [Recovered/Resolved]
  - Suicidal ideation [Recovered/Resolved]
  - Visual impairment [Recovered/Resolved]
  - Discomfort [Recovered/Resolved]
  - Depression [Recovered/Resolved]

NARRATIVE: CASE EVENT DATE: 2016
